FAERS Safety Report 4339936-9 (Version None)
Quarter: 2004Q2

REPORT INFORMATION
  Report Type: 
  Country: None (occurrence: None)
  Receive Date: 20040416
  Receipt Date: 20040225
  Transmission Date: 20050107
  Serious: Yes (Hospitalization)
  Sender: FDA-Public Use
  Company Number: JP-GLAXOSMITHKLINE-B0324504A

PATIENT
  Age: 24 Year
  Sex: Male

DRUGS (4)
  1. SAWACILLIN [Suspect]
     Indication: CELLULITIS
     Dosage: 250MG THREE TIMES PER DAY
     Route: 048
     Dates: start: 20040116, end: 20040123
  2. VOLTAREN [Suspect]
     Dosage: 25MG THREE TIMES PER DAY
     Route: 048
     Dates: start: 20040116, end: 20040123
  3. CRAVIT [Suspect]
     Dosage: 100MG THREE TIMES PER DAY
     Route: 048
     Dates: start: 20040123, end: 20040123
  4. ULGUT [Concomitant]
     Route: 048
     Dates: start: 20040116

REACTIONS (2)
  - DRUG ERUPTION [None]
  - DRUG INTERACTION [None]
